FAERS Safety Report 7620404-3 (Version None)
Quarter: 2011Q3

REPORT INFORMATION
  Report Type: 
  Country: None (occurrence: None)
  Receive Date: 20110719
  Receipt Date: 20110712
  Transmission Date: 20111222
  Serious: Yes (Other)
  Sender: FDA-Public Use
  Company Number: PHHY2010US36266

PATIENT
  Sex: Female
  Weight: 115 kg

DRUGS (4)
  1. OMEPRAZOLE [Concomitant]
     Route: 048
  2. MEPERIDINE HCL [Concomitant]
     Route: 048
  3. RECLAST [Suspect]
     Indication: OSTEOPENIA
     Dosage: 5 MG, UNK
     Route: 042
     Dates: start: 20100531, end: 20110602
  4. ESTROGENS [Concomitant]
     Indication: VULVOVAGINAL DRYNESS
     Dosage: UNK
     Route: 067
     Dates: start: 20100518

REACTIONS (7)
  - ABDOMINAL PAIN [None]
  - HAEMATOCHEZIA [None]
  - DIARRHOEA [None]
  - NAUSEA [None]
  - VOMITING [None]
  - MUCOUS STOOLS [None]
  - DIZZINESS [None]
